FAERS Safety Report 7096924-X (Version None)
Quarter: 2010Q4

REPORT INFORMATION
  Report Type: 
  Country: None (occurrence: None)
  Receive Date: 20101111
  Receipt Date: 20100225
  Transmission Date: 20110411
  Serious: No
  Sender: FDA-Public Use
  Company Number: US-KINGPHARMUSA00001-K201000226

PATIENT
  Sex: Female
  Weight: 49.887 kg

DRUGS (4)
  1. FLECTOR [Suspect]
     Indication: BACK PAIN
     Dosage: 1 PATCH FOR 8 HOURS
     Dates: start: 20100223, end: 20100223
  2. FLECTOR [Suspect]
     Dosage: 1 PATCH FOR 4 HOURS
     Dates: start: 20100224, end: 20100224
  3. ZANTAC [Concomitant]
     Indication: GASTROOESOPHAGEAL REFLUX DISEASE
     Dosage: UNK
  4. ASPIRIN [Concomitant]
     Dosage: UNK

REACTIONS (1)
  - PAIN [None]
